FAERS Safety Report 8478355-0 (Version None)
Quarter: 2012Q2

REPORT INFORMATION
  Report Type: 
  Country: None (occurrence: None)
  Receive Date: 20120629
  Receipt Date: 20111010
  Transmission Date: 20120825
  Serious: No
  Sender: FDA-Public Use
  Company Number: ZA-NOVOPROD-336196

PATIENT
  Age: 69 Year
  Sex: Female
  Weight: 69.4 kg

DRUGS (1)
  1. VICTOZA [Suspect]
     Indication: TYPE 2 DIABETES MELLITUS
     Dosage: 0.6 MG, QD
     Route: 058
     Dates: start: 20110523, end: 20110910

REACTIONS (1)
  - RASH [None]
